FAERS Safety Report 4835764-6 (Version None)
Quarter: 2005Q4

REPORT INFORMATION
  Report Type: 
  Country: None (occurrence: None)
  Receive Date: 20051123
  Receipt Date: 20051102
  Transmission Date: 20060501
  Serious: Yes (Disabling, Other)
  Sender: FDA-Public Use
  Company Number: US-GLAXOSMITHKLINE-A0580832A

PATIENT
  Age: 54 Year
  Sex: Female
  Weight: 130 kg

DRUGS (12)
  1. AVANDAMET [Suspect]
     Route: 048
     Dates: start: 20040101, end: 20050801
  2. COREG [Concomitant]
     Route: 048
     Dates: start: 20041201
  3. CADUET [Concomitant]
  4. DEMADEX [Concomitant]
  5. NEURONTIN [Concomitant]
  6. NEXIUM [Concomitant]
  7. ADVAIR DISKUS 100/50 [Concomitant]
  8. SPIRIVA [Concomitant]
  9. INSULIN [Concomitant]
  10. OXYCONTIN [Concomitant]
  11. AVANDIA [Concomitant]
  12. METFORMIN [Concomitant]

REACTIONS (3)
  - ABDOMINAL DISTENSION [None]
  - DYSPNOEA [None]
  - OEDEMA PERIPHERAL [None]
